FAERS Safety Report 10307816 (Version 2)
Quarter: 2014Q3

REPORT INFORMATION
  Report Type: Spontaneous
  Country: US (occurrence: US)
  Receive Date: 20140716
  Receipt Date: 20140918
  Transmission Date: 20150326
  Serious: Yes (Life-Threatening)
  Sender: FDA-Public Use
  Company Number: US-BAYER-2014-104810

PATIENT
  Age: 20 Year
  Sex: Female
  Weight: 51.25 kg

DRUGS (2)
  1. MIRENA [Suspect]
     Active Substance: LEVONORGESTREL
     Indication: CONTRACEPTION
     Dosage: 20 MCG/24HR, CONT
     Route: 015
     Dates: start: 20110506, end: 20121231
  2. DOXYCYCLINE. [Concomitant]
     Active Substance: DOXYCYCLINE
     Indication: URETHRITIS

REACTIONS (8)
  - Device dislocation [None]
  - Abdominal pain [None]
  - Medical device discomfort [None]
  - Uterine perforation [None]
  - Injury [None]
  - Procedural pain [None]
  - General physical health deterioration [None]
  - Infection [None]

NARRATIVE: CASE EVENT DATE: 201210
